FAERS Safety Report 6282203-7 (Version None)
Quarter: 2009Q3

REPORT INFORMATION
  Report Type: 
  Country: None (occurrence: None)
  Receive Date: 20090724
  Receipt Date: 20090715
  Transmission Date: 20100115
  Serious: Yes (Death)
  Sender: FDA-Public Use
  Company Number: US-PFIZER INC-2009222438

PATIENT
  Sex: Male

DRUGS (1)
  1. CAMPTOSAR [Suspect]
     Dosage: 135 MG, UNK

REACTIONS (3)
  - ABDOMINAL PAIN [None]
  - GLIOBLASTOMA MULTIFORME [None]
  - NON-SMALL CELL LUNG CANCER [None]
